FAERS Safety Report 4641594-0 (Version None)
Quarter: 2005Q2

REPORT INFORMATION
  Report Type: 
  Country: None (occurrence: None)
  Receive Date: 20050420
  Receipt Date: 20050405
  Transmission Date: 20051028
  Serious: Yes (Hospitalization)
  Sender: FDA-Public Use
  Company Number: 2005-BP-00014BP

PATIENT
  Age: 35 Year
  Sex: Female

DRUGS (3)
  1. AGGRENOX [Suspect]
     Indication: CEREBROVASCULAR ACCIDENT PROPHYLAXIS
     Dosage: 25 MG/200 MG 1 CAPSULE BID, PO
     Route: 048
  2. AGGRENOX [Suspect]
     Indication: PROPHYLAXIS
     Dosage: 25 MG/200 MG 1 CAPSULE BID, PO
     Route: 048
  3. AGGRENOX [Suspect]
     Indication: TRANSIENT ISCHAEMIC ATTACK
     Dosage: 25 MG/200 MG 1 CAPSULE BID, PO
     Route: 048

REACTIONS (2)
  - DISEASE RECURRENCE [None]
  - TRANSIENT ISCHAEMIC ATTACK [None]
